FAERS Safety Report 4867167-2 (Version None)
Quarter: 2005Q4

REPORT INFORMATION
  Report Type: 
  Country: None (occurrence: None)
  Receive Date: 20051222
  Receipt Date: 20051214
  Transmission Date: 20060501
  Serious: Yes (Disabling, Other)
  Sender: FDA-Public Use
  Company Number: 2005169312

PATIENT
  Age: 45 Year
  Sex: Female

DRUGS (1)
  1. LYRICA [Suspect]
     Indication: ILL-DEFINED DISORDER

REACTIONS (2)
  - BLINDNESS UNILATERAL [None]
  - RETINOPATHY [None]
